FAERS Safety Report 7088003-2 (Version None)
Quarter: 2010Q4

REPORT INFORMATION
  Report Type: 
  Country: None (occurrence: None)
  Receive Date: 20101001
  Receipt Date: 20100622
  Transmission Date: 20110411
  Serious: No
  Sender: FDA-Public Use
  Company Number: 1000014700

PATIENT
  Sex: Male

DRUGS (2)
  1. BYSTOLIC [Suspect]
  2. CLONIDINE [Suspect]

REACTIONS (1)
  - BLOOD PRESSURE ABNORMAL [None]
